FAERS Safety Report 6310633-3 (Version None)
Quarter: 2009Q3

REPORT INFORMATION
  Report Type: 
  Country: None (occurrence: None)
  Receive Date: 20090810
  Receipt Date: 20090724
  Transmission Date: 20100115
  Serious: Yes (Other)
  Sender: FDA-Public Use
  Company Number: ADE2009-0770

PATIENT
  Age: 23 Year
  Sex: Female

DRUGS (7)
  1. AMOXICILLIN 1000MG [Suspect]
     Indication: DEPRESSION
     Dosage: 2000MG - DAILY - ORAL
     Route: 048
     Dates: start: 20090615, end: 20090621
  2. MIRTAZAPINE [Suspect]
     Indication: DEPRESSION
     Dosage: 15MG - ORAL
     Route: 048
     Dates: start: 20090608, end: 20090609
  3. ATOSIL (PROMETHAZINE) [Suspect]
     Indication: DEPRESSION
     Dosage: 25MG - ORAL
     Route: 048
     Dates: start: 20090604, end: 20090609
  4. KLACID 500MG (CLARITHROMYCIN) [Suspect]
     Indication: DEPRESSION
     Dosage: 1000 - ORAL
     Route: 048
     Dates: start: 20090615, end: 20090621
  5. PANTOZOL 40 (PANTOPRAZOLE) [Suspect]
     Indication: HELICOBACTER INFECTION
     Dosage: 80MG - ORAL
     Route: 048
     Dates: start: 20090604
  6. VALDOXAN 25MG (AGOMELATINE) [Suspect]
     Indication: DEPRESSION
     Dosage: 25MG - ORAL
     Route: 048
     Dates: start: 20090605, end: 20090626
  7. ZYPREXA [Suspect]
     Indication: DEPRESSION
     Dosage: 5MG - ORAL
     Route: 048
     Dates: start: 20090610, end: 20090614

REACTIONS (3)
  - BLOOD PROLACTIN INCREASED [None]
  - BREAST DISCOMFORT [None]
  - BREAST ENLARGEMENT [None]
